FAERS Safety Report 5069698-1 (Version None)
Quarter: 2006Q3

REPORT INFORMATION
  Report Type: 
  Country: None (occurrence: None)
  Receive Date: 20060714
  Receipt Date: 20060405
  Transmission Date: 20061208
  Serious: No
  Sender: FDA-Public Use
  Company Number: 2006SP001557

PATIENT
  Age: 25 Year
  Sex: Male
  Weight: 74.3899 kg

DRUGS (3)
  1. LUNESTA [Suspect]
     Indication: INSOMNIA
     Dosage: 3 MG;HS;ORAL
     Route: 048
     Dates: start: 20060402, end: 20060404
  2. ADDERALL XR 15 [Suspect]
     Indication: ATTENTION DEFICIT/HYPERACTIVITY DISORDER
     Dosage: 15 MG;QD;ORAL
     Route: 048
     Dates: start: 20060402
  3. ADDERALL 10 [Concomitant]

REACTIONS (2)
  - DYSGEUSIA [None]
  - RASH [None]
